FAERS Safety Report 7792749-8 (Version None)
Quarter: 2011Q4

REPORT INFORMATION
  Report Type: 
  Country: None (occurrence: None)
  Receive Date: 20111003
  Receipt Date: 20110927
  Transmission Date: 20120403
  Serious: Yes (Death, Hospitalization, Other)
  Sender: FDA-Public Use
  Company Number: GR-CELGENEUS-066-21880-11023129

PATIENT
  Sex: Male
  Weight: 76 kg

DRUGS (9)
  1. TREBON [Concomitant]
     Indication: COUGH
     Route: 048
     Dates: start: 20101012, end: 20101104
  2. ATROVENT [Concomitant]
     Indication: WHEEZING
     Dosage: 1 X 3
     Route: 055
     Dates: start: 20101101, end: 20101105
  3. REVLIMID [Suspect]
     Indication: MULTIPLE MYELOMA
     Dosage: 10 MILLIGRAM
     Route: 048
     Dates: start: 20100528, end: 20100618
  4. DEXAMETHASONE SODIUM PHOSPHATE [Suspect]
     Indication: MULTIPLE MYELOMA
     Route: 041
     Dates: start: 20101103, end: 20101105
  5. CYCLOPHOSPHAMIDE [Concomitant]
     Indication: MULTIPLE MYELOMA
     Route: 055
     Dates: start: 20101103, end: 20101103
  6. CIPROFLOXACIN [Concomitant]
     Indication: NEUTROPENIA
  7. LASIX [Concomitant]
     Dosage: 1 X 2
     Route: 041
     Dates: start: 20101103, end: 20101103
  8. DEXAMETHASONE SODIUM PHOSPHATE [Suspect]
     Dosage: 2.6667 MILLIGRAM
     Route: 048
     Dates: start: 20100528, end: 20100531
  9. CIPROFLOXACIN [Concomitant]
     Route: 041
     Dates: start: 20101103, end: 20101105

REACTIONS (4)
  - PNEUMONIA [None]
  - FEBRILE NEUTROPENIA [None]
  - CEREBRAL HAEMORRHAGE [None]
  - THROMBOCYTOPENIA [None]
